FAERS Safety Report 7575327-5 (Version None)
Quarter: 2011Q2

REPORT INFORMATION
  Report Type: 
  Country: None (occurrence: None)
  Receive Date: 20110627
  Receipt Date: 20110616
  Transmission Date: 20111010
  Serious: Yes (Hospitalization)
  Sender: FDA-Public Use
  Company Number: BR-ASTRAZENECA-2011SE21322

PATIENT
  Age: 61 Year
  Sex: Male
  Weight: 90 kg

DRUGS (5)
  1. ATENOLOL [Suspect]
     Indication: HYPERTENSION
     Route: 048
     Dates: start: 20010101, end: 20100401
  2. CRESTOR [Suspect]
     Indication: HYPERCHOLESTEROLAEMIA
     Dosage: UNKNOWN DOSE ONCE DAILY
     Route: 048
     Dates: start: 20080101
  3. CEDUR RETARD [Concomitant]
     Dosage: UNKNOWN DOSE ONCE DAILY
     Route: 048
     Dates: start: 20080101
  4. ATACAND HCT [Suspect]
     Dosage: 16 + 12.5 MG
     Route: 048
  5. METOPROLOL SUCCINATE [Suspect]
     Indication: HYPERTENSION
     Dosage: UNKNOWN DOSE ONCE DAILY
     Route: 048
     Dates: start: 20100401

REACTIONS (5)
  - DIARRHOEA [None]
  - VISION BLURRED [None]
  - BLOOD PRESSURE INADEQUATELY CONTROLLED [None]
  - NAUSEA [None]
  - DRUG INEFFECTIVE [None]
